FAERS Safety Report 5700294-6 (Version None)
Quarter: 2008Q2

REPORT INFORMATION
  Report Type: 
  Country: None (occurrence: None)
  Receive Date: 20080410
  Receipt Date: 20080402
  Transmission Date: 20081010
  Serious: Yes (Hospitalization)
  Sender: FDA-Public Use
  Company Number: A0718932A

PATIENT
  Sex: Male

DRUGS (3)
  1. ADVAIR HFA [Suspect]
     Indication: ASTHMA
     Dosage: 1PUFF TWICE PER DAY
     Route: 055
     Dates: end: 20080324
  2. ALBUTEROL [Concomitant]
  3. PULMICORT [Concomitant]

REACTIONS (4)
  - ASTHMA [None]
  - DYSPHONIA [None]
  - THROAT IRRITATION [None]
  - VOCAL CORD DISORDER [None]
